FAERS Safety Report 19242671 (Version 1)
Quarter: 2021Q2

REPORT INFORMATION
  Report Type: Spontaneous
  Country: FR (occurrence: FR)
  Receive Date: 20210511
  Receipt Date: 20210511
  Transmission Date: 20210717
  Serious: Yes (Other)
  Sender: FDA-Public Use
  Company Number: FR-VIIV HEALTHCARE LIMITED-FR2021GSK095630

PATIENT
  Age: 51 Year
  Sex: Female

DRUGS (5)
  1. ABACAVIR. [Concomitant]
     Active Substance: ABACAVIR
     Indication: HIV INFECTION
     Dosage: UNK
  2. MARAVIROC [Suspect]
     Active Substance: MARAVIROC
     Indication: HIV INFECTION
     Dosage: 300 MG, BID
  3. LEVOTHYROXINE. [Interacting]
     Active Substance: LEVOTHYROXINE
     Dosage: 100 UG, QD
     Dates: start: 201205
  4. LAMIVUDINE HIV [Concomitant]
     Active Substance: LAMIVUDINE
     Indication: HIV INFECTION
     Dosage: UNK
  5. LEVOTHYROXINE. [Interacting]
     Active Substance: LEVOTHYROXINE
     Indication: THYROID HORMONE REPLACEMENT THERAPY
     Dosage: 125 UG, QD, 1.95 UG/KG/DAY
     Dates: start: 201205

REACTIONS (7)
  - Viral mutation identified [Unknown]
  - Hyperthyroidism [Unknown]
  - Fatigue [Unknown]
  - Diarrhoea [Unknown]
  - Antiviral drug level below therapeutic [Unknown]
  - Virologic failure [Recovered/Resolved]
  - Drug interaction [Unknown]
